FAERS Safety Report 21953104 (Version 2)
Quarter: 2023Q1

REPORT INFORMATION
  Report Type: Spontaneous
  Country: CA (occurrence: CA)
  Receive Date: 20230204
  Receipt Date: 20230321
  Transmission Date: 20230418
  Serious: Yes (Death)
  Sender: FDA-Public Use
  Company Number: CA-CELLTRION INC.-2023CA002398

PATIENT

DRUGS (2)
  1. INFLECTRA [Suspect]
     Active Substance: INFLIXIMAB-DYYB
     Indication: Colitis ulcerative
     Dosage: 5MG/KG AT 0, 2, 6 WEEKS THEN EVERY 8 WEEKS, FIRST 2 DOSES RECEIVED IN HOSPITAL
     Route: 042
     Dates: start: 20220218
  2. INFLECTRA [Suspect]
     Active Substance: INFLIXIMAB-DYYB
     Dosage: 5MG/KG AT 0, 2, 6 WEEKS THEN EVERY 8 WEEKS, FIRST 2 DOSES RECEIVED IN HOSPITAL
     Route: 042
     Dates: start: 20220303

REACTIONS (1)
  - Death [Fatal]

NARRATIVE: CASE EVENT DATE: 20230102
